FAERS Safety Report 15670611 (Version 2)
Quarter: 2018Q4

REPORT INFORMATION
  Report Type: Spontaneous
  Country: US (occurrence: US)
  Receive Date: 20181129
  Receipt Date: 20181219
  Transmission Date: 20190205
  Serious: No
  Sender: FDA-Public Use
  Company Number: US-ASTRAZENECA-2018SF55845

PATIENT
  Age: 72 Year
  Sex: Male
  Weight: 90.7 kg

DRUGS (4)
  1. ONGLYZA [Suspect]
     Active Substance: SAXAGLIPTIN HYDROCHLORIDE
     Indication: TYPE 2 DIABETES MELLITUS
     Route: 048
     Dates: end: 20181124
  2. METFORMIN [Concomitant]
     Active Substance: METFORMIN HYDROCHLORIDE
     Route: 048
  3. PHENAZOPYRIDINE. [Concomitant]
     Active Substance: PHENAZOPYRIDINE
     Indication: FUNGAL INFECTION
     Route: 048
     Dates: start: 20181124
  4. INSULIN [Concomitant]
     Active Substance: INSULIN NOS
     Dosage: 12USP UNITS ONCE A WEEK
     Route: 058

REACTIONS (9)
  - Dysuria [Recovering/Resolving]
  - Chills [Unknown]
  - Fungal infection [Unknown]
  - Fatigue [Unknown]
  - Paraesthesia [Unknown]
  - Rhinorrhoea [Not Recovered/Not Resolved]
  - Headache [Unknown]
  - Musculoskeletal pain [Unknown]
  - Pain in extremity [Unknown]
